FAERS Safety Report 23843710 (Version 1)
Quarter: 2024Q2

REPORT INFORMATION
  Report Type: Spontaneous
  Country: US (occurrence: US)
  Receive Date: 20240510
  Receipt Date: 20240510
  Transmission Date: 20240716
  Serious: Yes (Other)
  Sender: FDA-Public Use
  Company Number: US-BRISTOL-MYERS SQUIBB COMPANY-2024-073208

PATIENT
  Age: 70 Year
  Sex: Male

DRUGS (14)
  1. POMALYST [Suspect]
     Active Substance: POMALIDOMIDE
     Indication: Plasma cell myeloma
     Dosage: DAILY ON DAYS 1-21 EVERY 28 DAYS
     Route: 048
     Dates: start: 20211214, end: 20230308
  2. LIPITOR [Concomitant]
     Active Substance: ATORVASTATIN CALCIUM
     Indication: Product used for unknown indication
     Dosage: BED TIME
     Route: 048
     Dates: start: 20220204
  3. TESSALON [Concomitant]
     Active Substance: BENZONATATE
     Indication: Cough
     Dosage: BED TIME
     Route: 048
     Dates: start: 20230301
  4. BUSPAR [Concomitant]
     Active Substance: BUSPIRONE HYDROCHLORIDE
     Indication: Anxiety
     Dosage: BED TIME
     Route: 048
     Dates: start: 20220121
  5. PERIACTIN [Concomitant]
     Active Substance: CYPROHEPTADINE HYDROCHLORIDE
     Indication: Product used for unknown indication
     Dosage: BED TIME
     Dates: start: 20230302
  6. GENVOYA [Concomitant]
     Active Substance: COBICISTAT\ELVITEGRAVIR\EMTRICITABINE\TENOFOVIR ALAFENAMIDE FUMARATE
     Indication: Product used for unknown indication
     Dosage: 150-150-200-10 MG, 1 TAB BY MOUTH EVERYDAY IN THE MORNING WITH FOOD
     Route: 048
     Dates: start: 20220131
  7. LASIX [Concomitant]
     Active Substance: FUROSEMIDE
     Indication: Product used for unknown indication
     Dosage: BED TIME
     Dates: start: 20210824
  8. LOPRESSOR [Concomitant]
     Active Substance: METOPROLOL TARTRATE
     Indication: Product used for unknown indication
     Dosage: AS NEEDED
     Dates: start: 20220221
  9. NEURONTIN [Concomitant]
     Active Substance: GABAPENTIN
     Indication: Product used for unknown indication
     Dosage: DAILY 1 IN THE MORNING AND 2 AT BEDTIME
     Route: 048
     Dates: start: 20220221
  10. SINGULAIR [Concomitant]
     Active Substance: MONTELUKAST SODIUM
     Indication: Product used for unknown indication
     Dosage: AS NEEDED
     Dates: start: 20210409
  11. PROCHLORPERAZINE EDISYLATE [Concomitant]
     Active Substance: PROCHLORPERAZINE EDISYLATE
     Indication: Product used for unknown indication
     Dosage: AS NEEDED
     Dates: start: 20210705
  12. K TAB [Concomitant]
     Indication: Product used for unknown indication
     Dosage: BED TIME
     Route: 048
     Dates: start: 20230301
  13. FLONASE [Concomitant]
     Active Substance: FLUTICASONE PROPIONATE
     Indication: Product used for unknown indication
     Route: 045
     Dates: start: 20210601
  14. TRAVATAN Z [Concomitant]
     Active Substance: TRAVOPROST
     Indication: Product used for unknown indication
     Dosage: INSTILL 1 DROP IN BOTH EYES EVERY DAY IN THE EVENING
     Route: 047
     Dates: start: 20220201

REACTIONS (4)
  - Arthralgia [Unknown]
  - Joint swelling [Unknown]
  - Cardiac disorder [Unknown]
  - Thrombosis [Unknown]

NARRATIVE: CASE EVENT DATE: 20220311
